FAERS Safety Report 9460802 (Version 1)
Quarter: 2013Q3

REPORT INFORMATION
  Report Type: Spontaneous
  Country: US (occurrence: US)
  Receive Date: 20130815
  Receipt Date: 20130815
  Transmission Date: 20140515
  Serious: No
  Sender: FDA-Public Use
  Company Number: US-009507513-1308USA006986

PATIENT
  Age: 11 Year
  Sex: Male
  Weight: 42.18 kg

DRUGS (3)
  1. CLARITIN ORAL SOLUTION [Suspect]
     Indication: HYPERSENSITIVITY
     Dosage: 10 MG, QD
     Route: 048
  2. CLARITIN ORAL SOLUTION [Suspect]
     Dosage: 10 MG, QD
     Route: 048
  3. CLARITIN ORAL SOLUTION [Suspect]
     Dosage: 10 MG, BID
     Route: 048
     Dates: start: 20130807

REACTIONS (1)
  - Overdose [Recovered/Resolved]
